FAERS Safety Report 4370670-5 (Version None)
Quarter: 2004Q2

REPORT INFORMATION
  Report Type: 
  Country: None (occurrence: None)
  Receive Date: 20040526
  Receipt Date: 20040513
  Transmission Date: 20050107
  Serious: Yes (Other)
  Sender: FDA-Public Use
  Company Number: HQWYE879113MAY04

PATIENT
  Age: 80 Year
  Sex: Female

DRUGS (1)
  1. PROTIUM (PANTOPRAZOLE, TABLET, DELAYED RELEASE) [Suspect]
     Dosage: 20 MG 2X PER 1 DAY
     Route: 048

REACTIONS (1)
  - GASTRIC ULCER PERFORATION [None]
